FAERS Safety Report 25911536 (Version 1)
Quarter: 2025Q4

REPORT INFORMATION
  Report Type: Spontaneous
  Country: US (occurrence: US)
  Receive Date: 20251013
  Receipt Date: 20251013
  Transmission Date: 20260118
  Serious: No
  Sender: RANBAXY
  Company Number: US-MIMS-SUN-2025-USA-54442

PATIENT
  Sex: Male

DRUGS (1)
  1. LORATADINE\PSEUDOEPHEDRINE SULFATE [Suspect]
     Active Substance: LORATADINE\PSEUDOEPHEDRINE SULFATE
     Indication: Asthenia
     Dosage: UNK, QD
     Route: 065

REACTIONS (2)
  - Asthenia [Not Recovered/Not Resolved]
  - Dizziness [Not Recovered/Not Resolved]
